FAERS Safety Report 9840106 (Version 1)
Quarter: 2013Q4

REPORT INFORMATION
  Report Type: Spontaneous
  Country: US (occurrence: None)
  Receive Date: 20131206
  Receipt Date: 20131206
  Transmission Date: 20140711
  Serious: Yes (Other)
  Sender: FDA-Public Use
  Company Number: 1000045248

PATIENT
  Sex: Female

DRUGS (10)
  1. NAMENDA (MEMANTINE HYDROCHLORIDE) [Suspect]
     Indication: DEMENTIA
     Dosage: 20 MG (10 MG, 2 IN 1 D)
  2. TOVIAZ (FESOTERODINE FUMARATE) [Suspect]
     Indication: URINARY INCONTINENCE
  3. ZOLOFT (SERTRALINE HYDROCHLORIDE) [Suspect]
  4. ARICEPT (DONEPEZIL HYDROCHLORIDE) [Suspect]
     Indication: DEMENTIA
     Dosage: 10 MG (10 MG, 1 IN 1 D)
  5. AMLODIPINE (AMLODIPINE) [Suspect]
  6. VESICARE [Suspect]
  7. LITHIUM (LITHIUM) [Suspect]
  8. NORTRIPTYLINE (NORTRIPTYLINE) [Suspect]
  9. ASPIRIN (ACETYLSALICYLIC ACID) [Suspect]
  10. LOVASTATIN (LOVATATIN) (LOVASTATIN) [Concomitant]

REACTIONS (1)
  - Dementia [None]
